FAERS Safety Report 10878860 (Version 3)
Quarter: 2016Q2

REPORT INFORMATION
  Report Type: Report from Study
  Country: CA (occurrence: CA)
  Receive Date: 20150302
  Receipt Date: 20160606
  Transmission Date: 20160815
  Serious: Yes (Hospitalization, Other)
  Sender: FDA-Public Use
  Company Number: CA-ABBVIE-15P-028-1353015-00

PATIENT
  Age: 86 Year
  Sex: Male
  Weight: 54.48 kg

DRUGS (1)
  1. LUPRON DEPOT [Suspect]
     Active Substance: LEUPROLIDE ACETATE
     Indication: PROSTATE CANCER
     Route: 030
     Dates: start: 20141024

REACTIONS (5)
  - Dysuria [Recovered/Resolved]
  - Dizziness [Recovered/Resolved]
  - Faeces soft [Not Recovered/Not Resolved]
  - Blood urine [Recovered/Resolved]
  - Pollakiuria [Not Recovered/Not Resolved]

NARRATIVE: CASE EVENT DATE: 2014
